FAERS Safety Report 8768824 (Version 1)
Quarter: 2012Q4

REPORT INFORMATION
  Report Type: 
  Country: US (occurrence: US)
  Receive Date: 20120904
  Receipt Date: 20120904
  Transmission Date: 20130627
  Serious: No
  Sender: FDA-Public Use
  Company Number: US-AMGEN-USASP2012048777

PATIENT
  Age: 30 Month
  Sex: Female

DRUGS (1)
  1. ENBREL [Suspect]
     Indication: TUMOUR NECROSIS FACTOR RECEPTOR-ASSOCIATED PERIODIC SYNDROME
     Dosage: 8 mg, qwk
     Dates: start: 20120717

REACTIONS (1)
  - Feeling hot [Not Recovered/Not Resolved]
